FAERS Safety Report 15042780 (Version 1)
Quarter: 2018Q2

REPORT INFORMATION
  Report Type: Spontaneous
  Country: CN (occurrence: CN)
  Receive Date: 20180621
  Receipt Date: 20180621
  Transmission Date: 20180711
  Serious: Yes (Other)
  Sender: FDA-Public Use
  Company Number: PHHY2018CN020297

PATIENT
  Age: 70 Year
  Sex: Male

DRUGS (13)
  1. CLOPIDOGREL HYDROGEN SULFATE [Concomitant]
     Active Substance: CLOPIDOGREL BISULFATE
     Indication: EMBOLIC STROKE
     Dosage: 75 MG, QD
     Route: 065
     Dates: start: 20141130, end: 20150403
  2. ATORVASTATIN [Interacting]
     Active Substance: ATORVASTATIN
     Dosage: 20 MG, QD
     Route: 065
     Dates: start: 20150404, end: 20171108
  3. DABIGATRAN [Interacting]
     Active Substance: DABIGATRAN
     Indication: EMBOLIC STROKE
     Dosage: 110 MG, BID
     Route: 065
     Dates: start: 20150504, end: 20171108
  4. AMLODIPINE BESYLATE. [Concomitant]
     Active Substance: AMLODIPINE BESYLATE
     Dosage: UNK
     Route: 065
     Dates: start: 20150404, end: 20171108
  5. METOPROLOL TARTRATE. [Concomitant]
     Active Substance: METOPROLOL TARTRATE
     Indication: EMBOLIC STROKE
     Dosage: 25 MG, BID
     Route: 065
     Dates: start: 20141130, end: 20150403
  6. METFORMIN HYDROCHLORIDE. [Concomitant]
     Active Substance: METFORMIN HYDROCHLORIDE
     Indication: EMBOLIC STROKE
     Dosage: 500 MG, QD
     Route: 065
     Dates: start: 20141130, end: 20150403
  7. METFORMIN HYDROCHLORIDE. [Concomitant]
     Active Substance: METFORMIN HYDROCHLORIDE
     Dosage: 500 MG, QD
     Route: 065
     Dates: start: 20150404, end: 20171108
  8. ATORVASTATIN [Suspect]
     Active Substance: ATORVASTATIN
     Indication: EMBOLIC STROKE
     Dosage: 20 MG, QD
     Route: 065
     Dates: start: 20141130, end: 20150403
  9. AMLODIPINE BESYLATE. [Concomitant]
     Active Substance: AMLODIPINE BESYLATE
     Dosage: 5 MG, BID
     Route: 065
     Dates: start: 20141130, end: 20150403
  10. CLONIDINE HYDROCHLORIDE. [Concomitant]
     Active Substance: CLONIDINE HYDROCHLORIDE
     Indication: EMBOLIC STROKE
     Dosage: 75 UG, QD
     Route: 065
     Dates: start: 20150404, end: 20171108
  11. AMLODIPINE BESYLATE. [Concomitant]
     Active Substance: AMLODIPINE BESYLATE
     Indication: EMBOLIC STROKE
     Dosage: 5 MG, BID
     Route: 065
     Dates: start: 20140621, end: 20141129
  12. METOPROLOL TARTRATE. [Concomitant]
     Active Substance: METOPROLOL TARTRATE
     Dosage: 25 MG, BID
     Route: 065
     Dates: start: 20150404, end: 20171108
  13. OLMESARTAN MEDOXOMIL. [Concomitant]
     Active Substance: OLMESARTAN MEDOXOMIL
     Indication: EMBOLIC STROKE
     Dosage: 20 MG, Q
     Route: 065
     Dates: start: 20150404, end: 20171108

REACTIONS (3)
  - Drug interaction [Unknown]
  - Atrial thrombosis [Recovered/Resolved]
  - Product use in unapproved indication [Unknown]
